FAERS Safety Report 7721234-4 (Version None)
Quarter: 2011Q3

REPORT INFORMATION
  Report Type: 
  Country: None (occurrence: None)
  Receive Date: 20110825
  Receipt Date: 20110811
  Transmission Date: 20111222
  Serious: Yes (Hospitalization)
  Sender: FDA-Public Use
  Company Number: 1000023038

PATIENT
  Age: 81 Year
  Sex: Male

DRUGS (6)
  1. OMEPRAZOL (OMEPRAZOLE) (OMEPRAZOLE) [Concomitant]
  2. PROZAC [Suspect]
     Indication: DEPRESSION
     Dosage: 20 MG (20 MG,1 IN 1 D),ORAL
     Route: 048
     Dates: start: 20110401
  3. CARDYL COMPRIMIDO RECUBIERTOS CON PELICULA (ATORVASTATIN CALCIUM TRIHY [Concomitant]
  4. TRANGOREX COMPRIMIDOS (AMIODARONE HYDROCHLORIDE) (AMIODARONE HYDROCHLO [Concomitant]
  5. SINTROM [Suspect]
     Indication: ATRIAL FLUTTER
     Dosage: ORAL
     Route: 048
     Dates: start: 20101201, end: 20110510
  6. ESCITALOPRAM [Suspect]
     Indication: DEPRESSION
     Dosage: 10 MG (10 MG,1 IN 1 D),ORAL
     Route: 048
     Dates: start: 20100701

REACTIONS (7)
  - DIVERTICULUM [None]
  - HAEMATOCHEZIA [None]
  - ATRIAL FLUTTER [None]
  - HAEMATURIA [None]
  - INTERNATIONAL NORMALISED RATIO INCREASED [None]
  - HAEMOGLOBIN DECREASED [None]
  - HAEMORRHAGE [None]
